FAERS Safety Report 15566774 (Version 1)
Quarter: 2018Q4

REPORT INFORMATION
  Report Type: Spontaneous
  Country: US (occurrence: US)
  Receive Date: 20181030
  Receipt Date: 20181030
  Transmission Date: 20190205
  Serious: Yes (Other)
  Sender: FDA-Public Use
  Company Number: US-PFIZER INC-2018437143

PATIENT
  Sex: Female

DRUGS (1)
  1. PROTONIX [Suspect]
     Active Substance: PANTOPRAZOLE SODIUM

REACTIONS (3)
  - Hypoaesthesia [Recovering/Resolving]
  - Barrett^s oesophagus [Unknown]
  - Urticaria [Unknown]

NARRATIVE: CASE EVENT DATE: 20181022
